FAERS Safety Report 9807115 (Version 2)
Quarter: 2014Q1

REPORT INFORMATION
  Report Type: Spontaneous
  Country: JP (occurrence: JP)
  Receive Date: 20140110
  Receipt Date: 20140121
  Transmission Date: 20141002
  Serious: Yes (Other)
  Sender: FDA-Public Use
  Company Number: JP-ROCHE-1331171

PATIENT
  Age: 92 Year
  Sex: Female

DRUGS (4)
  1. BONVIVA [Suspect]
     Indication: OSTEOPOROSIS
     Route: 042
     Dates: start: 20131023
  2. OXYCONTIN [Concomitant]
     Indication: CANCER PAIN
     Dosage: DOSAGE IS UNCERTAIN.
     Route: 048
  3. NOVAMIN (JAPAN) [Concomitant]
     Indication: NAUSEA
     Dosage: DOSAGE IS UNCERTAIN.
     Route: 048
  4. EDIROL [Concomitant]
     Dosage: DOSAGE IS UNCERTAIN.
     Route: 048

REACTIONS (2)
  - Coma [Recovering/Resolving]
  - Pain [Unknown]
